FAERS Safety Report 17655862 (Version 2)
Quarter: 2023Q1

REPORT INFORMATION
  Report Type: Spontaneous
  Country: US (occurrence: US)
  Receive Date: 20200410
  Receipt Date: 20230123
  Transmission Date: 20230418
  Serious: No
  Sender: FDA-Public Use
  Company Number: US-NOVARTISTESTPH-NVSC2020US095961

PATIENT
  Sex: Male
  Weight: 83 kg

DRUGS (8)
  1. SULFADIAZINE [Suspect]
     Active Substance: SULFADIAZINE
     Indication: Antibiotic therapy
     Dosage: UNK
     Route: 065
     Dates: start: 20200206, end: 20200211
  2. DARAPRIM [Suspect]
     Active Substance: PYRIMETHAMINE
     Indication: Toxoplasmosis
     Dosage: 25 MG, TID
     Route: 065
     Dates: start: 20200206, end: 202002
  3. LEUCOVORIN [Suspect]
     Active Substance: LEUCOVORIN
     Indication: Immunisation
     Dosage: UNK
     Route: 065
     Dates: start: 20200206, end: 202002
  4. BENADRYL [Concomitant]
     Active Substance: DIPHENHYDRAMINE HYDROCHLORIDE
     Indication: Product used for unknown indication
     Dosage: UNK
     Route: 065
  5. LORATADINE [Concomitant]
     Active Substance: LORATADINE
     Indication: Product used for unknown indication
     Dosage: UNK
     Route: 065
  6. GASTROCROM [Concomitant]
     Active Substance: CROMOLYN SODIUM
     Indication: Product used for unknown indication
     Dosage: UNK
     Route: 065
  7. VALTREX [Concomitant]
     Active Substance: VALACYCLOVIR HYDROCHLORIDE
     Indication: Product used for unknown indication
     Dosage: UNK
     Route: 065
  8. GABAPENTIN [Concomitant]
     Active Substance: GABAPENTIN
     Indication: Product used for unknown indication
     Dosage: UNK
     Route: 065

REACTIONS (13)
  - Pharyngeal swelling [Unknown]
  - Dyspnoea [Unknown]
  - Pain [Unknown]
  - Dizziness [Unknown]
  - Rash papular [Unknown]
  - Feeling abnormal [Unknown]
  - Nuchal rigidity [Unknown]
  - Musculoskeletal stiffness [Unknown]
  - Bradyphrenia [Unknown]
  - Cognitive disorder [Unknown]
  - Drug hypersensitivity [Unknown]
  - Rash [Unknown]
  - Nausea [Unknown]
